FAERS Safety Report 9856638 (Version 2)
Quarter: 2014Q1

REPORT INFORMATION
  Report Type: Spontaneous
  Country: US (occurrence: US)
  Receive Date: 20140130
  Receipt Date: 20140130
  Transmission Date: 20141002
  Serious: Yes (Death)
  Sender: FDA-Public Use
  Company Number: US-GLAXOSMITHKLINE-A0802180A

PATIENT
  Age: 59 Year
  Sex: Male
  Weight: 204.5 kg

DRUGS (2)
  1. AVANDAMET [Suspect]
     Indication: DIABETES MELLITUS
     Route: 048
     Dates: start: 20040211, end: 20050610
  2. AVANDIA [Suspect]
     Indication: DIABETES MELLITUS
     Dosage: 4MG PER DAY
     Route: 048
     Dates: start: 20050617, end: 20061113

REACTIONS (3)
  - Acute myocardial infarction [Fatal]
  - Generalised oedema [Unknown]
  - Oedema peripheral [Unknown]
